FAERS Safety Report 5332345-5 (Version None)
Quarter: 2007Q2

REPORT INFORMATION
  Report Type: 
  Country: None (occurrence: None)
  Receive Date: 20070523
  Receipt Date: 20070521
  Transmission Date: 20071010
  Serious: Yes (Hospitalization)
  Sender: FDA-Public Use
  Company Number: A0652125A

PATIENT
  Sex: Male

DRUGS (3)
  1. ADVAIR DISKUS 100/50 [Suspect]
     Indication: CHRONIC OBSTRUCTIVE PULMONARY DISEASE
     Dosage: 1PUFF THREE TIMES PER DAY
     Route: 055
  2. SPIRIVA [Concomitant]
  3. DIGOXIN [Concomitant]

REACTIONS (2)
  - PNEUMONIA [None]
  - PULMONARY OEDEMA [None]
